FAERS Safety Report 4286549-3 (Version None)
Quarter: 2004Q1

REPORT INFORMATION
  Report Type: 
  Country: None (occurrence: None)
  Receive Date: 20040204
  Receipt Date: 20040123
  Transmission Date: 20041129
  Serious: Yes (Death)
  Sender: FDA-Public Use
  Company Number: IT-JNJFOC-20040104894

PATIENT
  Age: 68 Year

DRUGS (2)
  1. REOPRO [Suspect]
     Indication: ACUTE MYOCARDIAL INFARCTION
     Dosage: INJECTION
  2. RETEVASE [Suspect]
     Indication: ACUTE MYOCARDIAL INFARCTION
     Dosage: INTRAVENOUS
     Route: 042

REACTIONS (5)
  - AV DISSOCIATION [None]
  - CARDIAC ARREST [None]
  - CYANOSIS [None]
  - DRUG INTERACTION [None]
  - FEELING COLD [None]
